FAERS Safety Report 25061548 (Version 4)
Quarter: 2025Q2

REPORT INFORMATION
  Report Type: Report from Study
  Country: KR (occurrence: KR)
  Receive Date: 20250311
  Receipt Date: 20250506
  Transmission Date: 20250717
  Serious: No
  Sender: TAKEDA
  Company Number: KR-TAKEDA-2022TUS048556

PATIENT
  Sex: Male

DRUGS (18)
  1. BRIGATINIB [Suspect]
     Active Substance: BRIGATINIB
     Indication: Non-small cell lung cancer
     Dosage: 90 MILLIGRAM, QD
     Dates: start: 20220401, end: 20220407
  2. BRIGATINIB [Suspect]
     Active Substance: BRIGATINIB
     Dosage: 180 MILLIGRAM, QD
     Dates: start: 20220408, end: 20231220
  3. BRIGATINIB [Suspect]
     Active Substance: BRIGATINIB
     Dosage: 120 MILLIGRAM, QD
     Dates: start: 20231226
  4. CYCLOSERINE [Concomitant]
     Active Substance: CYCLOSERINE
     Indication: Tuberculosis
     Dosage: 500 MILLIGRAM, QD
     Dates: start: 20220328, end: 20220721
  5. COUGH SYRUP [Concomitant]
     Active Substance: DEXTROMETHORPHAN HYDROBROMIDE\GUAIFENESIN
     Indication: Prophylaxis
     Dosage: 60 MILLILITER, QD
     Dates: start: 20220328, end: 20220531
  6. Moveloxin [Concomitant]
     Indication: Tuberculosis
     Dosage: 400 MILLIGRAM, QD
     Dates: start: 20220328, end: 20220721
  7. Prothionamide gju [Concomitant]
     Indication: Tuberculosis
     Dosage: 375 MILLIGRAM, QD
     Dates: start: 20220328, end: 20220827
  8. PYRAZINAMIDE [Concomitant]
     Active Substance: PYRAZINAMIDE
     Indication: Tuberculosis
     Dosage: 1500 MILLIGRAM, QD
     Dates: start: 20220328, end: 20220721
  9. PYRIDOXINE HYDROCHLORIDE [Concomitant]
     Active Substance: PYRIDOXINE HYDROCHLORIDE
     Indication: Vitamin supplementation
     Dosage: 100 MILLIGRAM, QD
     Dates: start: 20220328, end: 20220721
  10. XARELTO [Concomitant]
     Active Substance: RIVAROXABAN
     Indication: Prophylaxis
     Dosage: 20 MILLIGRAM, QD
     Dates: start: 20220405, end: 20221012
  11. AMIKACIN [Concomitant]
     Active Substance: AMIKACIN
     Indication: Tuberculosis
     Dosage: UNK UNK, QD
     Dates: start: 20220401, end: 20220404
  12. AMIKACIN [Concomitant]
     Active Substance: AMIKACIN
     Dosage: 500 MILLIGRAM, QD
     Dates: start: 20220401, end: 20220404
  13. ENOXAPARIN SODIUM [Concomitant]
     Active Substance: ENOXAPARIN SODIUM
     Indication: Thrombosis prophylaxis
     Dates: start: 20220401, end: 20220404
  14. Furix [Concomitant]
     Indication: Prophylaxis
     Dosage: 20 MILLIGRAM, QD
     Dates: start: 20220401, end: 20220408
  15. METHYLPREDNISOLONE [Concomitant]
     Active Substance: METHYLPREDNISOLONE
     Indication: Tuberculosis
     Dosage: 8 MILLIGRAM, QD
     Dates: start: 20220405, end: 20220408
  16. METHYLPREDNISOLONE [Concomitant]
     Active Substance: METHYLPREDNISOLONE
     Dosage: 4 MILLIGRAM, QD
     Dates: start: 20220409, end: 20220411
  17. PANTOPRAZOLE SODIUM [Concomitant]
     Active Substance: PANTOPRAZOLE SODIUM
     Indication: Gastrooesophageal reflux prophylaxis
     Dates: start: 20220411, end: 20221013
  18. Spirodacton [Concomitant]
     Indication: Prophylaxis
     Dates: start: 20220401, end: 20220408

REACTIONS (1)
  - Haemoptysis [Recovered/Resolved]

NARRATIVE: CASE EVENT DATE: 20220429
